FAERS Safety Report 12854297 (Version 1)
Quarter: 2016Q4

REPORT INFORMATION
  Report Type: Report from Study
  Country: US (occurrence: US)
  Receive Date: 20161017
  Receipt Date: 20161017
  Transmission Date: 20170207
  Serious: Yes (Death, Other)
  Sender: FDA-Public Use
  Company Number: US-GILEAD-2016-0238477

PATIENT
  Age: 84 Year
  Sex: Female

DRUGS (14)
  1. METOPROLOL SUCCINATE. [Concomitant]
     Active Substance: METOPROLOL SUCCINATE
  2. WARFARIN [Concomitant]
     Active Substance: WARFARIN
  3. AMBRISENTAN [Suspect]
     Active Substance: AMBRISENTAN
     Indication: PULMONARY HYPERTENSION
     Dosage: 10 MG, QD
     Route: 065
     Dates: start: 20160621
  4. NORCO [Concomitant]
     Active Substance: ACETAMINOPHEN\HYDROCODONE BITARTRATE
  5. ASPIRIN                            /00002701/ [Concomitant]
     Active Substance: ASPIRIN
  6. METFORMIN [Concomitant]
     Active Substance: METFORMIN HYDROCHLORIDE
  7. AMLODIPINE [Concomitant]
     Active Substance: AMLODIPINE BESYLATE
  8. FUROSEMIDE. [Concomitant]
     Active Substance: FUROSEMIDE
  9. ADCIRCA [Suspect]
     Active Substance: TADALAFIL
     Indication: PRODUCT USED FOR UNKNOWN INDICATION
     Route: 065
  10. PAROXETINE. [Concomitant]
     Active Substance: PAROXETINE
  11. DILTIAZEM. [Concomitant]
     Active Substance: DILTIAZEM
  12. SYNTHROID [Concomitant]
     Active Substance: LEVOTHYROXINE SODIUM
  13. MORPHINE [Concomitant]
     Active Substance: MORPHINE
  14. ZETIA [Concomitant]
     Active Substance: EZETIMIBE

REACTIONS (2)
  - Death [Fatal]
  - Pain [Unknown]

NARRATIVE: CASE EVENT DATE: 20160927
